FAERS Safety Report 6111974-5 (Version None)
Quarter: 2009Q1

REPORT INFORMATION
  Report Type: 
  Country: None (occurrence: None)
  Receive Date: 20090310
  Receipt Date: 20090218
  Transmission Date: 20090719
  Serious: Yes (Hospitalization)
  Sender: FDA-Public Use
  Company Number: 6049110

PATIENT
  Age: 66 Year
  Sex: Female

DRUGS (9)
  1. LEVOTHYROXINE SODIUM [Suspect]
     Indication: DRUG USE FOR UNKNOWN INDICATION
     Dosage: ORAL
     Route: 048
  2. VELCADE [Suspect]
     Indication: MULTIPLE MYELOMA
     Dosage: 0.3571 MG (2.5 MG, 1 IN 1 WK) INTRAVENOUS
     Route: 042
     Dates: start: 20081106, end: 20090107
  3. DEXAMETHASONE TAB [Suspect]
     Indication: MULTIPLE MYELOMA
     Dosage: 5.7143 MG (40 MG, 1 IN 1 WK) INTRAVENOUS
     Route: 042
     Dates: start: 20081106, end: 20090107
  4. OMEPRAZOLE [Suspect]
     Indication: DRUG USE FOR UNKNOWN INDICATION
     Dosage: ORAL
     Route: 048
  5. CALCIDIA (CALCIUM CARBONATE) [Suspect]
     Indication: DRUG USE FOR UNKNOWN INDICATION
     Dosage: ORAL
     Route: 048
  6. AMLODIPINE [Suspect]
     Indication: DRUG USE FOR UNKNOWN INDICATION
  7. UN-ALFA (ALFACALCIDOL) [Concomitant]
  8. SULFARLEM S 25 (ANETHOLE TRITHIONE) [Concomitant]
  9. DEDROGYL (CALCIFEDIOL) [Concomitant]

REACTIONS (12)
  - ACUTE CORONARY SYNDROME [None]
  - ACUTE PULMONARY OEDEMA [None]
  - ARRHYTHMIA [None]
  - ATRIAL FIBRILLATION [None]
  - BLOOD PRESSURE DECREASED [None]
  - CARDIAC FAILURE [None]
  - DIALYSIS [None]
  - RENAL IMPAIRMENT [None]
  - RESPIRATORY DISTRESS [None]
  - SUFFOCATION FEELING [None]
  - TACHYCARDIA [None]
  - URINARY TRACT INFECTION [None]
